FAERS Safety Report 19681895 (Version 2)
Quarter: 2021Q3

REPORT INFORMATION
  Report Type: Report from Study
  Country: US (occurrence: US)
  Receive Date: 20210810
  Receipt Date: 20210901
  Transmission Date: 20211014
  Serious: No
  Sender: FDA-Public Use
  Company Number: US-AMGEN-USASP2021119012

PATIENT
  Age: 51 Year
  Sex: Female

DRUGS (6)
  1. XELJANZ [Concomitant]
     Active Substance: TOFACITINIB CITRATE
  2. CELEBREX [Concomitant]
     Active Substance: CELECOXIB
  3. ENBREL [Suspect]
     Active Substance: ETANERCEPT
     Indication: RHEUMATOID ARTHRITIS
     Dosage: 50 MILLIGRAM, QWK
     Route: 065
     Dates: start: 2019
  4. ENBREL [Suspect]
     Active Substance: ETANERCEPT
     Dosage: 50 MILLIGRAM, QWK
     Route: 065
  5. METHOTREXATE. [Concomitant]
     Active Substance: METHOTREXATE
  6. HUMIRA [Concomitant]
     Active Substance: ADALIMUMAB

REACTIONS (5)
  - Drug ineffective [Unknown]
  - Wrong technique in product usage process [Unknown]
  - Device difficult to use [Unknown]
  - Accidental exposure to product [Unknown]
  - Incorrect dose administered by device [Unknown]

NARRATIVE: CASE EVENT DATE: 20210730
